FAERS Safety Report 6099809-0 (Version None)
Quarter: 2009Q1

REPORT INFORMATION
  Report Type: 
  Country: None (occurrence: None)
  Receive Date: 20090303
  Receipt Date: 20090219
  Transmission Date: 20090719
  Serious: Yes (Other)
  Sender: FDA-Public Use
  Company Number: PHHY2008JP33185

PATIENT
  Sex: Female

DRUGS (6)
  1. ZOMETA [Suspect]
     Indication: METASTASES TO BONE
     Dosage: 4 MG, UNK
     Route: 042
     Dates: start: 20060601, end: 20080901
  2. TS 1 [Concomitant]
     Indication: BREAST CANCER
     Dosage: 120 MG/DAY
     Dates: start: 20080301
  3. CAMPTOSAR [Concomitant]
     Indication: BREAST CANCER
     Dosage: 136 MG/DAY
     Dates: start: 20080301
  4. TAXOL [Concomitant]
     Indication: METASTASES TO BONE
     Dosage: UNK
     Dates: start: 20060601
  5. HERCEPTIN [Concomitant]
     Indication: METASTASES TO BONE
     Dosage: UNK
     Dates: start: 20060601
  6. NAVELBINE [Concomitant]
     Indication: METASTASES TO BONE
     Dosage: UNK
     Dates: start: 20070501

REACTIONS (5)
  - DISEASE PROGRESSION [None]
  - METASTASES TO LIVER [None]
  - OSTEONECROSIS [None]
  - PAIN IN JAW [None]
  - TOOTH EXTRACTION [None]
